FAERS Safety Report 16862108 (Version 1)
Quarter: 2019Q3

REPORT INFORMATION
  Report Type: Spontaneous
  Country: RO (occurrence: RO)
  Receive Date: 20190927
  Receipt Date: 20190927
  Transmission Date: 20191005
  Serious: Yes (Other)
  Sender: FDA-Public Use
  Company Number: RO-AMGEN-ROUSL2019157846

PATIENT

DRUGS (1)
  1. PROLIA [Suspect]
     Active Substance: DENOSUMAB
     Indication: PRODUCT USED FOR UNKNOWN INDICATION
     Dosage: UNK
     Route: 065

REACTIONS (6)
  - Unevaluable event [Unknown]
  - Pelvic fracture [Unknown]
  - Lower limb fracture [Unknown]
  - Drug ineffective [Unknown]
  - Fall [Unknown]
  - Hepatic cirrhosis [Unknown]
